FAERS Safety Report 14822971 (Version 1)
Quarter: 2018Q2

REPORT INFORMATION
  Report Type: Report from Study
  Country: PA (occurrence: PA)
  Receive Date: 20180427
  Receipt Date: 20180427
  Transmission Date: 20180711
  Serious: Yes (Hospitalization, Other)
  Sender: FDA-Public Use
  Company Number: PHHY2017PA109584

PATIENT
  Sex: Female

DRUGS (1)
  1. AFINITOR [Suspect]
     Active Substance: EVEROLIMUS
     Indication: PRODUCT USED FOR UNKNOWN INDICATION
     Dosage: UNK
     Route: 065
     Dates: end: 20180404

REACTIONS (10)
  - Infection [Unknown]
  - Malaise [Recovered/Resolved]
  - General physical health deterioration [Unknown]
  - Mobility decreased [Unknown]
  - Decreased appetite [Recovered/Resolved]
  - Movement disorder [Recovered/Resolved]
  - Food poisoning [Unknown]
  - Depressed mood [Unknown]
  - Asthenia [Recovered/Resolved]
  - Diarrhoea [Unknown]
